FAERS Safety Report 8722433 (Version 4)
Quarter: 2012Q4

REPORT INFORMATION
  Report Type: 
  Country: FR (occurrence: FR)
  Receive Date: 20120814
  Receipt Date: 20120910
  Transmission Date: 20130627
  Serious: Yes (Hospitalization, Other)
  Sender: FDA-Public Use
  Company Number: FR-PFIZER INC-2012192801

PATIENT
  Age: 80 Year
  Sex: Male

DRUGS (6)
  1. EUPANTOL [Suspect]
     Indication: PROPHYLAXIS AGAINST GASTROINTESTINAL ULCER
     Dosage: 20 mg, 1x/day
     Route: 048
     Dates: start: 20120103, end: 20120117
  2. TAHOR [Suspect]
     Indication: DYSLIPIDAEMIA
     Dosage: 80 mg, one dosage form daily
     Route: 048
     Dates: start: 20120105, end: 20120117
  3. PROZAC [Suspect]
     Indication: DEPRESSION
     Dosage: 20 mg, one dosage form daily
     Route: 048
     Dates: start: 20120111, end: 20120117
  4. LOVENOX [Suspect]
     Indication: PROPHYLAXIS
     Dosage: 4000 IU, daily
     Route: 058
     Dates: start: 20120102, end: 20120117
  5. KARDEGIC [Concomitant]
     Dosage: 75 mg once a day
     Route: 048
     Dates: start: 1997
  6. TAREG [Concomitant]
     Dosage: 80 mg once a day
     Route: 048
     Dates: start: 2009

REACTIONS (3)
  - Rash maculo-papular [Recovered/Resolved]
  - C-reactive protein increased [Unknown]
  - Leukocytosis [Unknown]
